FAERS Safety Report 10520694 (Version 6)
Quarter: 2015Q1

REPORT INFORMATION
  Report Type: Spontaneous
  Country: JP (occurrence: JP)
  Receive Date: 20141015
  Receipt Date: 20150325
  Transmission Date: 20150720
  Serious: Yes (Other)
  Sender: FDA-Public Use
  Company Number: JP-JNJFOC-20141008849

PATIENT
  Age: 69 Year
  Sex: Female
  Weight: 54 kg

DRUGS (8)
  1. COBALOKININ (LOXOPROFEN) [Suspect]
     Active Substance: LOXOPROFEN SODIUM
     Indication: PYREXIA
     Route: 048
     Dates: start: 20140812
  2. REBETOL [Suspect]
     Active Substance: RIBAVIRIN
     Indication: CHRONIC HEPATITIS C
     Route: 048
     Dates: start: 20141202
  3. REBETOL [Suspect]
     Active Substance: RIBAVIRIN
     Indication: CHRONIC HEPATITIS C
     Route: 048
     Dates: start: 20141118, end: 20141201
  4. COBALOKININ (LOXOPROFEN) [Suspect]
     Active Substance: LOXOPROFEN SODIUM
     Indication: PROCTALGIA
     Route: 048
     Dates: start: 20140812
  5. SOVRIAD [Suspect]
     Active Substance: SIMEPREVIR
     Indication: CHRONIC HEPATITIS C
     Route: 048
     Dates: start: 20140812, end: 20141104
  6. PEGINTRON [Suspect]
     Active Substance: PEGINTERFERON ALFA-2B
     Indication: CHRONIC HEPATITIS C
     Route: 058
     Dates: start: 20140812
  7. COBALOKININ (LOXOPROFEN) [Suspect]
     Active Substance: LOXOPROFEN SODIUM
     Indication: CHILLS
     Route: 048
     Dates: start: 20140812
  8. REBETOL [Suspect]
     Active Substance: RIBAVIRIN
     Indication: CHRONIC HEPATITIS C
     Route: 048
     Dates: start: 20140812, end: 20141117

REACTIONS (12)
  - Pyrexia [Recovering/Resolving]
  - Haemoglobin decreased [Unknown]
  - Blood bilirubin increased [Recovering/Resolving]
  - Alanine aminotransferase abnormal [Not Recovered/Not Resolved]
  - Red blood cell count decreased [Unknown]
  - Chills [Recovering/Resolving]
  - Aspartate aminotransferase increased [Not Recovered/Not Resolved]
  - Platelet count decreased [Recovering/Resolving]
  - Hepatitis C [Not Recovered/Not Resolved]
  - White blood cell count decreased [Not Recovered/Not Resolved]
  - Proctalgia [Recovering/Resolving]
  - Nausea [Recovering/Resolving]

NARRATIVE: CASE EVENT DATE: 20140812
